FAERS Safety Report 4835487-3 (Version None)
Quarter: 2005Q4

REPORT INFORMATION
  Report Type: 
  Country: None (occurrence: None)
  Receive Date: 20051121
  Receipt Date: 20051107
  Transmission Date: 20060501
  Serious: Yes (Hospitalization, Other)
  Sender: FDA-Public Use
  Company Number: 2005147705

PATIENT
  Sex: Male
  Weight: 88.4514 kg

DRUGS (12)
  1. NEURONTIN [Suspect]
     Indication: NEURALGIA
     Dosage: ORAL
  2. NEURONTIN [Suspect]
     Indication: NEUROPATHY
     Dosage: ORAL
  3. LYRICA [Suspect]
     Indication: NEUROPATHY PERIPHERAL
     Dosage: 100 MG (50 MG, 2 IN 1 D), ORAL
     Route: 048
     Dates: start: 20051001
  4. ANTIDEPRESSANTS (ANTIDEPRESSANTS) [Suspect]
     Indication: ILL-DEFINED DISORDER
  5. ANALGESICS (ANALGESICS) [Suspect]
     Indication: PAIN
  6. SECTRAL [Concomitant]
  7. NEXIUM [Concomitant]
  8. PROTONIX [Concomitant]
  9. KLONOPIN [Concomitant]
  10. LEVAQUIN [Concomitant]
  11. MEPRON [Concomitant]
  12. AZITHROMYCIN [Concomitant]

REACTIONS (17)
  - AGITATION [None]
  - ANGER [None]
  - BABESIOSIS [None]
  - CHEST PAIN [None]
  - DELUSION [None]
  - DRUG INEFFECTIVE [None]
  - FATIGUE [None]
  - FEELING ABNORMAL [None]
  - HALLUCINATION [None]
  - HEART RATE INCREASED [None]
  - IMPULSE-CONTROL DISORDER [None]
  - INSOMNIA [None]
  - LYME DISEASE [None]
  - NERVOUSNESS [None]
  - PALPITATIONS [None]
  - PELVIC FLOOR MUSCLE WEAKNESS [None]
  - TREMOR [None]
